FAERS Safety Report 19571297 (Version 4)
Quarter: 2022Q1

REPORT INFORMATION
  Report Type: Report from Study
  Country: CA (occurrence: CA)
  Receive Date: 20210716
  Receipt Date: 20220111
  Transmission Date: 20220423
  Serious: Yes (Other)
  Sender: FDA-Public Use
  Company Number: CA-BAUSCH-BL-2021-022681

PATIENT
  Age: 59 Year
  Sex: Female
  Weight: 83.990 kg

DRUGS (3)
  1. SILIQ [Suspect]
     Active Substance: BRODALUMAB
     Indication: Psoriasis
     Dosage: 210 MG / 1.5 ML, WEEK 0: 17/JUN/2021, WEEK 1: 24/JUN/2021; WEEK 3: /JUN/2021
     Route: 058
     Dates: start: 20210617, end: 202106
  2. SILIQ [Suspect]
     Active Substance: BRODALUMAB
     Indication: Psoriasis
     Dosage: 210 MG / 1.5 ML;  Q 2 WEEKS
     Route: 058
     Dates: start: 2021, end: 2021
  3. FINACEA [Concomitant]
     Active Substance: AZELAIC ACID
     Indication: Rosacea
     Dosage: 1 APPLICATION PRN
     Dates: start: 20211228

REACTIONS (13)
  - Cardiac flutter [Recovering/Resolving]
  - Abdominal pain upper [Recovering/Resolving]
  - Back pain [Recovering/Resolving]
  - Insomnia [Recovering/Resolving]
  - Palpitations [Recovering/Resolving]
  - Oral mucosal discolouration [Recovered/Resolved]
  - Cough [Recovering/Resolving]
  - Headache [Recovering/Resolving]
  - Injection site pain [Recovering/Resolving]
  - Arthralgia [Recovering/Resolving]
  - Diarrhoea [Recovering/Resolving]
  - Viral infection [Recovering/Resolving]
  - Drug ineffective [Unknown]

NARRATIVE: CASE EVENT DATE: 20210101
